FAERS Safety Report 11091873 (Version 3)
Quarter: 2016Q2

REPORT INFORMATION
  Report Type: Spontaneous
  Country: US (occurrence: US)
  Receive Date: 20150505
  Receipt Date: 20160407
  Transmission Date: 20160815
  Serious: Yes (Hospitalization, Disabling)
  Sender: FDA-Public Use
  Company Number: US-009507513-1505USA000677

PATIENT
  Sex: Male

DRUGS (2)
  1. PROPECIA [Suspect]
     Active Substance: FINASTERIDE
     Indication: ALOPECIA
     Dosage: 1 MG, UNKNOWN
     Route: 048
     Dates: start: 19990719, end: 20080408
  2. ALLOPURINOL. [Concomitant]
     Active Substance: ALLOPURINOL
     Indication: GOUT
     Dosage: UNK, UNKNOWN
     Route: 065
     Dates: start: 1965

REACTIONS (6)
  - Erectile dysfunction [Not Recovered/Not Resolved]
  - Sexual dysfunction [Not Recovered/Not Resolved]
  - Loss of libido [Unknown]
  - Adverse event [Unknown]
  - Anxiety [Not Recovered/Not Resolved]
  - Peyronie^s disease [Not Recovered/Not Resolved]

NARRATIVE: CASE EVENT DATE: 2004
